FAERS Safety Report 19902616 (Version 1)
Quarter: 2021Q3

REPORT INFORMATION
  Report Type: Report from Study
  Country: CL (occurrence: CL)
  Receive Date: 20210930
  Receipt Date: 20210930
  Transmission Date: 20211014
  Serious: Yes (Other)
  Sender: FDA-Public Use
  Company Number: CL-JNJFOC-20210934667

PATIENT
  Age: 70 Year
  Sex: Male

DRUGS (1)
  1. REMICADE [Suspect]
     Active Substance: INFLIXIMAB
     Indication: CROHN^S DISEASE
     Route: 042

REACTIONS (8)
  - Congenital cystic kidney disease [Unknown]
  - Clostridium difficile infection [Unknown]
  - Escherichia infection [Unknown]
  - Diverticulitis [Unknown]
  - Drug ineffective [Unknown]
  - Crohn^s disease [Unknown]
  - Cytomegalovirus infection [Unknown]
  - Bacteraemia [Unknown]

NARRATIVE: CASE EVENT DATE: 202103
